FAERS Safety Report 5117690-0 (Version None)
Quarter: 2006Q3

REPORT INFORMATION
  Report Type: 
  Country: None (occurrence: None)
  Receive Date: 20060929
  Receipt Date: 20060831
  Transmission Date: 20061208
  Serious: Yes (Death, Hospitalization)
  Sender: FDA-Public Use
  Company Number: PHEH2006US11196

PATIENT
  Age: 60 Year
  Sex: Female

DRUGS (2)
  1. TRAMADOL HCL [Interacting]
     Indication: PAIN
     Dosage: UNK, PRN
  2. ZELNORM [Suspect]
     Indication: CONSTIPATION
     Dosage: 6 MG, BID
     Dates: start: 20060518, end: 20060526

REACTIONS (11)
  - ABDOMINAL OPERATION [None]
  - ABDOMINAL PAIN [None]
  - CONSTIPATION [None]
  - CORONARY ARTERY DISEASE [None]
  - DRUG PRESCRIBING ERROR [None]
  - GAIT DISTURBANCE [None]
  - MALAISE [None]
  - NEOPLASM MALIGNANT [None]
  - RENAL FAILURE [None]
  - SUDDEN CARDIAC DEATH [None]
  - VISUAL DISTURBANCE [None]
